FAERS Safety Report 20853876 (Version 1)
Quarter: 2022Q2

REPORT INFORMATION
  Report Type: Spontaneous
  Country: US (occurrence: None)
  Receive Date: 20220519
  Receipt Date: 20220519
  Transmission Date: 20220721
  Serious: Yes (Hospitalization)
  Sender: FDA-Public Use
  Company Number: None

PATIENT

DRUGS (2)
  1. CALCIUM CHLORIDE [Suspect]
     Active Substance: CALCIUM CHLORIDE
  2. AMIODARONE [Suspect]
     Active Substance: AMIODARONE

REACTIONS (5)
  - Wrong product administered [None]
  - Product packaging confusion [None]
  - Product name confusion [None]
  - Product communication issue [None]
  - Product label confusion [None]
